FAERS Safety Report 8069584-9 (Version None)
Quarter: 2012Q1

REPORT INFORMATION
  Report Type: 
  Country: None (occurrence: None)
  Receive Date: 20120125
  Receipt Date: 20120114
  Transmission Date: 20120608
  Serious: Yes (Hospitalization, Other)
  Sender: FDA-Public Use
  Company Number: US-PFIZER INC-2011270462

PATIENT
  Age: 58 Year
  Sex: Male
  Weight: 90 kg

DRUGS (8)
  1. METOCLOPRAMIDE [Suspect]
     Indication: IMPAIRED GASTRIC EMPTYING
     Dosage: 10 MG, 2X/DAY
     Route: 048
  2. NEBIVOLOL [Concomitant]
  3. RABEPRAZOLE [Concomitant]
  4. VENLAFAXINE HCL [Suspect]
     Dosage: UNK
  5. SERTRALINE HYDROCHLORIDE [Suspect]
     Dosage: UNK
  6. MESALAMINE [Concomitant]
  7. VALSARTAN [Concomitant]
  8. CLINDAMYCIN [Concomitant]
     Indication: TOOTH EXTRACTION

REACTIONS (2)
  - OVERDOSE [None]
  - NEUROLEPTIC MALIGNANT SYNDROME [None]
